FAERS Safety Report 8192626-7 (Version None)
Quarter: 2012Q1

REPORT INFORMATION
  Report Type: 
  Country: None (occurrence: None)
  Receive Date: 20120308
  Receipt Date: 20120229
  Transmission Date: 20120608
  Serious: Yes (Hospitalization)
  Sender: FDA-Public Use
  Company Number: US-BAYER-2011-039937

PATIENT
  Age: 32 Year
  Sex: Female
  Weight: 88.889 kg

DRUGS (4)
  1. YAZ [Suspect]
     Indication: MENSTRUATION IRREGULAR
     Dosage: UNK
     Dates: start: 20090201, end: 20090401
  2. NAPROXEN [Concomitant]
     Dosage: UNK
     Dates: start: 20080901, end: 20091101
  3. BACLOFEN [Concomitant]
  4. NAPROXEN (ALEVE) [Concomitant]
     Dosage: UNK
     Dates: start: 20090401

REACTIONS (7)
  - DEPRESSION [None]
  - MENTAL DISORDER [None]
  - ANHEDONIA [None]
  - TRANSIENT ISCHAEMIC ATTACK [None]
  - PAIN [None]
  - ANXIETY [None]
  - INJURY [None]
